FAERS Safety Report 9916515 (Version 1)
Quarter: 2014Q1

REPORT INFORMATION
  Report Type: Spontaneous
  Country: AU (occurrence: AU)
  Receive Date: 20140221
  Receipt Date: 20140221
  Transmission Date: 20141002
  Serious: Yes (Other)
  Sender: FDA-Public Use
  Company Number: AU-NOVOPROD-400766

PATIENT
  Age: 2 Year
  Sex: Male

DRUGS (2)
  1. NOVOSEVEN [Suspect]
     Indication: PULMONARY ALVEOLAR HAEMORRHAGE
     Dosage: UNK (50 MCG/KG)
     Route: 007
  2. NOVOSEVEN [Suspect]
     Indication: OFF LABEL USE

REACTIONS (5)
  - Hypercapnia [Unknown]
  - Hypoxia [Unknown]
  - Thrombosis [Unknown]
  - Incorrect route of drug administration [Unknown]
  - Off label use [Unknown]
